FAERS Safety Report 13674359 (Version 1)
Quarter: 2017Q2

REPORT INFORMATION
  Report Type: Spontaneous
  Country: DE (occurrence: DE)
  Receive Date: 20170621
  Receipt Date: 20170621
  Transmission Date: 20170830
  Serious: Yes (Hospitalization)
  Sender: FDA-Public Use
  Company Number: DE-TEVA-779519GER

PATIENT
  Age: 37 Year
  Sex: Male

DRUGS (9)
  1. PREDNISONE. [Suspect]
     Active Substance: PREDNISONE
     Indication: HODGKIN^S DISEASE STAGE II
     Dosage: AS A PART OF BEACOPP REGIMEN, 2 CYCLES
     Route: 065
  2. ADRIAMYCIN [Suspect]
     Active Substance: DOXORUBICIN HYDROCHLORIDE
     Indication: HODGKIN^S DISEASE STAGE II
     Dosage: AS A PART OF BEACOPP AND ABVD REGIMENS, 2 CYCLES OF EACH REGIMEN
     Route: 065
  3. ONCOVIN [Suspect]
     Active Substance: VINCRISTINE SULFATE
     Indication: HODGKIN^S DISEASE STAGE II
     Dosage: AS A PART OF BEACOPP REGIMEN, 2 CYCLES
     Route: 065
  4. PROCARBAZINE [Suspect]
     Active Substance: PROCARBAZINE
     Indication: HODGKIN^S DISEASE STAGE II
     Dosage: AS A PART OF BEACOPP REGIMEN, 2 CYCLES
     Route: 065
  5. CYCLOPHOSPHAMIDE. [Suspect]
     Active Substance: CYCLOPHOSPHAMIDE
     Indication: HODGKIN^S DISEASE STAGE II
     Dosage: AS A PART OF BEACOPP REGIMEN, 2 CYCLES
     Route: 065
  6. ETOPOSIDE. [Suspect]
     Active Substance: ETOPOSIDE
     Indication: HODGKIN^S DISEASE STAGE II
     Dosage: AS A PART OF BEACOPP REGIMEN, 2 CYCLES
     Route: 065
  7. BLEOMYCIN [Suspect]
     Active Substance: BLEOMYCIN SULFATE
     Indication: HODGKIN^S DISEASE STAGE II
     Dosage: AS A PART OF BEACOPP AND ABVD REGIMENS, 2 CYCLES OF EACH REGIMEN
     Route: 065
  8. VINBLASTINE [Suspect]
     Active Substance: VINBLASTINE
     Indication: HODGKIN^S DISEASE STAGE II
     Dosage: AS A PART OF ABVD REGIMEN, 2 CYCLES
     Route: 065
  9. DACARBAZINE. [Suspect]
     Active Substance: DACARBAZINE
     Indication: HODGKIN^S DISEASE STAGE II
     Dosage: AS A PART OF ABVD REGIMEN, 2 CYCLES
     Route: 065

REACTIONS (2)
  - Metastases to lung [Unknown]
  - Prostate cancer metastatic [Unknown]
